FAERS Safety Report 17868385 (Version 5)
Quarter: 2021Q2

REPORT INFORMATION
  Report Type: Report from Study
  Country: None (occurrence: IL)
  Receive Date: 20200606
  Receipt Date: 20210625
  Transmission Date: 20210717
  Serious: Yes (Death, Other)
  Sender: FDA-Public Use
  Company Number: IL-ABBVIE-20K-082-3430808-00

PATIENT
  Age: 73 Year
  Sex: Male
  Weight: 83 kg

DRUGS (39)
  1. VENETOCLAX. [Suspect]
     Active Substance: VENETOCLAX
     Route: 048
     Dates: start: 20200525, end: 20200528
  2. VENETOCLAX. [Suspect]
     Active Substance: VENETOCLAX
     Route: 048
     Dates: start: 20200607, end: 20200609
  3. FLUCONAZOLE. [Concomitant]
     Active Substance: FLUCONAZOLE
     Indication: NEUTROPHIL COUNT DECREASED
     Dates: start: 20200523, end: 20200528
  4. FLUCONAZOLE. [Concomitant]
     Active Substance: FLUCONAZOLE
     Indication: SEPTIC SHOCK
     Dates: start: 20200625, end: 20200626
  5. ENSURE [Concomitant]
     Active Substance: AMINO ACIDS\DEXTROSE\ELECTROLYTES NOS\SOYBEAN OIL\VITAMINS
     Indication: EXCESSIVE DIETARY SUPPLEMENT INTAKE
     Dates: start: 20200716
  6. CLEXAN [Concomitant]
     Active Substance: ENOXAPARIN SODIUM
     Indication: ANTICOAGULANT THERAPY
     Dates: start: 20200725, end: 20200729
  7. VENETOCLAX. [Suspect]
     Active Substance: VENETOCLAX
     Indication: ACUTE MYELOID LEUKAEMIA
     Route: 048
     Dates: start: 20200512, end: 20200524
  8. AZACITIDINE. [Suspect]
     Active Substance: AZACITIDINE
     Indication: ACUTE MYELOID LEUKAEMIA
     Dosage: 136 MILLIGRAM CYCLE 1
     Route: 058
     Dates: start: 20200510, end: 20200516
  9. AZACITIDINE. [Suspect]
     Active Substance: AZACITIDINE
     Dosage: CYCLE 2
     Route: 058
     Dates: start: 20200607, end: 20200608
  10. PREDNISONE. [Concomitant]
     Active Substance: PREDNISONE
     Indication: PRODUCT USED FOR UNKNOWN INDICATION
     Dates: start: 20200512
  11. OPTALGIN [Concomitant]
     Active Substance: METAMIZOLE
     Indication: PAIN MANAGEMENT
     Dates: start: 20200511, end: 20200511
  12. NEUPOGEN [Concomitant]
     Active Substance: FILGRASTIM
     Dates: start: 20200618, end: 20200625
  13. VENETOCLAX. [Suspect]
     Active Substance: VENETOCLAX
     Route: 048
     Dates: start: 20200602, end: 20200604
  14. VENETOCLAX. [Suspect]
     Active Substance: VENETOCLAX
     Route: 048
     Dates: start: 20200719, end: 20200728
  15. FUSID [Concomitant]
     Indication: OEDEMA
     Dates: start: 20200511
  16. CARDILOC [Concomitant]
     Active Substance: BISOPROLOL FUMARATE
     Dates: start: 20200520, end: 20200605
  17. TARGIN [Concomitant]
     Active Substance: NALOXONE HYDROCHLORIDE\OXYCODONE HYDROCHLORIDE
     Indication: PAIN MANAGEMENT
     Dosage: (START PRIOR TO STUDY START)
     Dates: start: 20200519
  18. ZOFRAN [Concomitant]
     Active Substance: ONDANSETRON HYDROCHLORIDE
     Indication: PROPHYLAXIS OF NAUSEA AND VOMITING
     Dates: start: 20200510
  19. MAGNOX [Concomitant]
     Indication: PROPHYLAXIS
     Dosage: (PRIOR TO STUDY START)
     Dates: start: 20200511
  20. SLOW K [Concomitant]
     Active Substance: POTASSIUM CHLORIDE
     Indication: PROPHYLAXIS
     Dates: start: 20200530
  21. DUROGESIC [Concomitant]
     Active Substance: FENTANYL
     Indication: PAIN MANAGEMENT
     Dosage: (PRIOR TO STUDY START)
     Dates: start: 20200510, end: 20200518
  22. CIPROFLOXACIN. [Concomitant]
     Active Substance: CIPROFLOXACIN
     Indication: INFECTION PROPHYLAXIS
     Dates: start: 20200601, end: 20200606
  23. CALCILESS [Concomitant]
     Dates: start: 20200620, end: 20200624
  24. NEUPOGEN [Concomitant]
     Active Substance: FILGRASTIM
     Indication: NEUTROPHIL COUNT DECREASED
     Dates: start: 20200604, end: 20200605
  25. NEUPOGEN [Concomitant]
     Active Substance: FILGRASTIM
     Indication: PROPHYLAXIS
     Dates: start: 20200611, end: 20200611
  26. NEUPOGEN [Concomitant]
     Active Substance: FILGRASTIM
     Dates: start: 20200615, end: 20200615
  27. ALLORIL [Concomitant]
     Active Substance: ALLOPURINOL
     Indication: PROPHYLAXIS
     Dates: start: 20200511
  28. VENETOCLAX. [Suspect]
     Active Substance: VENETOCLAX
     Route: 048
     Dates: start: 20200611, end: 20200626
  29. AZACITIDINE. [Suspect]
     Active Substance: AZACITIDINE
     Dosage: CYCLE 2
     Route: 058
     Dates: start: 20200611, end: 20200615
  30. CARDILOC [Concomitant]
     Active Substance: BISOPROLOL FUMARATE
     Indication: HYPERTENSION
     Dates: start: 20200511, end: 20200514
  31. MAGNOX [Concomitant]
     Indication: PROPHYLAXIS
  32. VENETOCLAX. [Suspect]
     Active Substance: VENETOCLAX
     Route: 048
     Dates: start: 20200529, end: 20200601
  33. AZACITIDINE. [Suspect]
     Active Substance: AZACITIDINE
     Dosage: CYCLE 3
     Route: 058
     Dates: start: 20200719, end: 20200725
  34. OMEPRADEX [Concomitant]
     Active Substance: OMEPRAZOLE
     Indication: PROPHYLAXIS AGAINST GASTROINTESTINAL ULCER
     Dates: start: 20200511
  35. FLUCONAZOLE. [Concomitant]
     Active Substance: FLUCONAZOLE
     Indication: INFECTION PROPHYLAXIS
     Dates: start: 20200602, end: 20200607
  36. CLONEX [Concomitant]
     Indication: SEIZURE PROPHYLAXIS
     Dates: start: 20200522, end: 20200522
  37. FOLIC ACID. [Concomitant]
     Active Substance: FOLIC ACID
     Indication: PRODUCT USED FOR UNKNOWN INDICATION
  38. CALCILESS [Concomitant]
     Indication: URINARY TRACT DISORDER PROPHYLAXIS
     Dates: start: 20200612, end: 20200612
  39. VITAMIN C;VITAMIN D NOS [Concomitant]
     Indication: PRODUCT USED FOR UNKNOWN INDICATION

REACTIONS (38)
  - Pulmonary oedema [Recovered/Resolved]
  - Neutrophil count decreased [Recovered/Resolved]
  - Tachycardia [Recovered/Resolved]
  - Hypertension [Recovered/Resolved]
  - Oral candidiasis [Recovered/Resolved]
  - Pyrexia [Recovered/Resolved]
  - Thrombocytopenia [Recovered/Resolved]
  - Death [Fatal]
  - Septic shock [Recovered/Resolved]
  - Febrile neutropenia [Recovered/Resolved]
  - Constipation [Recovered/Resolved]
  - Diarrhoea [Recovered/Resolved]
  - Neutrophil count decreased [Recovered/Resolved]
  - Dyspnoea [Recovered/Resolved]
  - Leukopenia [Recovered/Resolved]
  - Neutrophil count decreased [Unknown]
  - Febrile neutropenia [Recovered/Resolved]
  - Dysphonia [Recovered/Resolved]
  - Leukopenia [Recovered/Resolved]
  - Diarrhoea [Recovered/Resolved]
  - Thrombocytopenia [Recovered/Resolved]
  - Oral herpes [Recovered/Resolved]
  - Peripheral sensory neuropathy [Recovered/Resolved]
  - Staphylococcal infection [Recovered/Resolved]
  - Decubitus ulcer [Unknown]
  - Thrombocytopenia [Not Recovered/Not Resolved]
  - Hyperuricaemia [Recovered/Resolved]
  - Soft tissue infection [Recovered/Resolved]
  - Hypotension [Recovered/Resolved]
  - Pain in extremity [Recovered/Resolved]
  - Neutrophil count decreased [Recovered/Resolved]
  - Dyspnoea [Unknown]
  - Hypotension [Recovered/Resolved]
  - Neutrophil count abnormal [Recovered/Resolved]
  - Fatigue [Unknown]
  - Diarrhoea [Recovered/Resolved]
  - Leukopenia [Not Recovered/Not Resolved]
  - Neutrophil count decreased [Recovered/Resolved]

NARRATIVE: CASE EVENT DATE: 20200512
